FAERS Safety Report 15596771 (Version 1)
Quarter: 2018Q4

REPORT INFORMATION
  Report Type: Spontaneous
  Country: IT (occurrence: IT)
  Receive Date: 20181108
  Receipt Date: 20181108
  Transmission Date: 20190205
  Serious: Yes (Hospitalization)
  Sender: FDA-Public Use
  Company Number: IT-TEVA-2018-IT-972271

PATIENT
  Age: 45 Year
  Sex: Female

DRUGS (1)
  1. DOCETAXEL RATIOPHARM ITALIA 20 MG/ML CONCENTRATO PER SOLUZIONE PER INF [Suspect]
     Active Substance: DOCETAXEL
     Indication: BREAST CANCER
     Route: 042
     Dates: start: 20180921, end: 20181012

REACTIONS (4)
  - Pruritus [Recovered/Resolved]
  - Pain [Recovered/Resolved]
  - Urticaria [Recovered/Resolved]
  - Rales [Recovered/Resolved]

NARRATIVE: CASE EVENT DATE: 20181012
